FAERS Safety Report 5652036-0 (Version None)
Quarter: 2008Q1

REPORT INFORMATION
  Report Type: 
  Country: None (occurrence: None)
  Receive Date: 20080305
  Receipt Date: 20080222
  Transmission Date: 20080703
  Serious: Yes (Hospitalization, Other)
  Sender: FDA-Public Use
  Company Number: CA-PFIZER INC-2008016713

PATIENT
  Age: 39 Year
  Sex: Female

DRUGS (3)
  1. LYRICA [Suspect]
     Indication: PAIN
     Dates: start: 20060701, end: 20061101
  2. LYRICA [Suspect]
     Indication: NEURALGIA
  3. MORPHINE [Concomitant]

REACTIONS (9)
  - ARTHRALGIA [None]
  - BODY TEMPERATURE FLUCTUATION [None]
  - DRY MOUTH [None]
  - FLUID RETENTION [None]
  - FRUSTRATION [None]
  - NEURALGIA [None]
  - SPINAL CORD INJURY [None]
  - TREMOR [None]
  - WEIGHT INCREASED [None]
